FAERS Safety Report 7037725-8 (Version None)
Quarter: 2010Q4

REPORT INFORMATION
  Report Type: 
  Country: None (occurrence: None)
  Receive Date: 20101011
  Receipt Date: 20101001
  Transmission Date: 20110411
  Serious: Yes (Hospitalization)
  Sender: FDA-Public Use
  Company Number: GXKR2009DK13776

PATIENT
  Sex: Female

DRUGS (2)
  1. SIMVASTATIN (NGX) [Suspect]
     Indication: BLOOD CHOLESTEROL INCREASED
     Dosage: 40 MG, QD
     Route: 048
     Dates: start: 20091120, end: 20091208
  2. PROPAL - SLOW RELEASE [Concomitant]
     Indication: BLOOD PRESSURE INCREASED
     Dosage: 160 MILLIGRAM(S)
     Route: 048
     Dates: start: 20090101

REACTIONS (6)
  - BLOOD CREATINE PHOSPHOKINASE [None]
  - HEPATIC ENZYME INCREASED [None]
  - HYPERTENSION [None]
  - MALAISE [None]
  - MUSCLE SPASMS [None]
  - MYALGIA [None]
